FAERS Safety Report 25774787 (Version 1)
Quarter: 2025Q3

REPORT INFORMATION
  Report Type: Report from Study
  Country: EU (occurrence: EU)
  Receive Date: 20250908
  Receipt Date: 20250908
  Transmission Date: 20251020
  Serious: Yes (Hospitalization)
  Sender: ABBVIE
  Company Number: EU-ABBVIE-6448356

PATIENT
  Age: 53 Year
  Sex: Female

DRUGS (1)
  1. RINVOQ [Suspect]
     Active Substance: UPADACITINIB
     Indication: Atopy
     Route: 048
     Dates: start: 20250401

REACTIONS (1)
  - Psychotherapy [Recovered/Resolved]

NARRATIVE: CASE EVENT DATE: 20250624
